FAERS Safety Report 16145072 (Version 1)
Quarter: 2019Q2

REPORT INFORMATION
  Report Type: Spontaneous
  Country: US (occurrence: US)
  Receive Date: 20190402
  Receipt Date: 20190402
  Transmission Date: 20190711
  Serious: No
  Sender: FDA-Public Use
  Company Number: US-GLENMARK PHARMACEUTICALS-2019GMK039444

PATIENT

DRUGS (1)
  1. ASHLYNA [Suspect]
     Active Substance: ETHINYL ESTRADIOL\LEVONORGESTREL
     Indication: CONTRACEPTION
     Dosage: 1 DF, OD (0.15 MG/0.03 MG AND 0.01 MG)
     Route: 048
     Dates: start: 20180808

REACTIONS (2)
  - Menorrhagia [Not Recovered/Not Resolved]
  - Headache [Unknown]
